FAERS Safety Report 9702473 (Version 1)
Quarter: 2013Q4

REPORT INFORMATION
  Report Type: Spontaneous
  Country: FR (occurrence: None)
  Receive Date: 20131120
  Receipt Date: 20131120
  Transmission Date: 20140711
  Serious: Yes (Other)
  Sender: FDA-Public Use
  Company Number: 2011945

PATIENT
  Age: 79 Year
  Sex: Male

DRUGS (8)
  1. GEMCITABINE HYDROCHLORIDE [Suspect]
     Indication: MYCOSIS FUNGOIDES
     Route: 042
     Dates: start: 20130805
  2. STAGID [Concomitant]
  3. NOVONORM [Concomitant]
  4. LIPANTHYL [Concomitant]
  5. ESOMEPRAZOLE [Concomitant]
  6. LEVOTHYROX [Concomitant]
  7. CELIPROLOL [Concomitant]
  8. LASILIX [Concomitant]

REACTIONS (1)
  - Palmoplantar keratoderma [None]
